FAERS Safety Report 11545532 (Version 5)
Quarter: 2015Q4

REPORT INFORMATION
  Report Type: Spontaneous
  Country: US (occurrence: US)
  Receive Date: 20150924
  Receipt Date: 20151217
  Transmission Date: 20160304
  Serious: Yes (Hospitalization, Other)
  Sender: FDA-Public Use
  Company Number: PHHY2015US086317

PATIENT
  Age: 46 Year
  Sex: Male

DRUGS (9)
  1. BACLOFEN INTRATHECAL [Suspect]
     Active Substance: BACLOFEN
     Indication: MUSCLE SPASTICITY
     Dosage: 57.02 UG, QD
     Route: 037
     Dates: start: 20150910
  2. METOPROLOL [Suspect]
     Active Substance: METOPROLOL
     Indication: PRODUCT USED FOR UNKNOWN INDICATION
     Dosage: 2 DF, BID (2 TABS EVERY AM AND TWO TABS EVERY PM)
     Route: 048
  3. AMBIEN [Suspect]
     Active Substance: ZOLPIDEM TARTRATE
     Indication: SLEEP DISORDER
     Dosage: 1 DF, PRN (1 TAB EVERY BEDTIME AS NEEDED)
     Route: 048
  4. COPAXONE [Suspect]
     Active Substance: GLATIRAMER ACETATE
     Indication: PRODUCT USED FOR UNKNOWN INDICATION
     Dosage: UNK
     Route: 065
  5. OXYCONTIN [Suspect]
     Active Substance: OXYCODONE HYDROCHLORIDE
     Indication: PAIN
     Dosage: 20 MG, TID AS NEEDED
     Route: 048
  6. CYMBALTA [Suspect]
     Active Substance: DULOXETINE HYDROCHLORIDE
     Indication: PRODUCT USED FOR UNKNOWN INDICATION
     Dosage: 60 MG, BID
     Route: 048
  7. DIORAN [Suspect]
     Active Substance: CHLORMEZANONE\IBUPROFEN\METAMIZOLE SODIUM
     Indication: PRODUCT USED FOR UNKNOWN INDICATION
     Dosage: 80 MG, QD
     Route: 048
  8. BACLOFEN. [Suspect]
     Active Substance: BACLOFEN
     Indication: MUSCLE SPASMS
     Dosage: 1 DF, PRN
     Route: 048
  9. CLONAZEPAM. [Suspect]
     Active Substance: CLONAZEPAM
     Indication: PRODUCT USED FOR UNKNOWN INDICATION
     Dosage: 1 DF, QD (HALF A TAB LUNCH OR 1 TAB ORALLY EVERY AM AND PM)
     Route: 048

REACTIONS (15)
  - Multimorbidity [Unknown]
  - Gait disturbance [Unknown]
  - Performance status decreased [Unknown]
  - Clonus [Unknown]
  - Spinal cord injury [Unknown]
  - Muscular weakness [Unknown]
  - Pain in extremity [Unknown]
  - Secondary progressive multiple sclerosis [Unknown]
  - Dysarthria [Unknown]
  - Adverse drug reaction [Unknown]
  - Muscle spasms [Unknown]
  - Back pain [Unknown]
  - Spinal pain [Unknown]
  - Neuralgia [Unknown]
  - Burning sensation [Unknown]

NARRATIVE: CASE EVENT DATE: 20150910
